FAERS Safety Report 9409363 (Version 2)
Quarter: 2013Q3

REPORT INFORMATION
  Report Type: Spontaneous
  Country: FR (occurrence: FR)
  Receive Date: 20130719
  Receipt Date: 20130813
  Transmission Date: 20140515
  Serious: Yes (Hospitalization)
  Sender: FDA-Public Use
  Company Number: FR-JNJFOC-20130703602

PATIENT
  Sex: Female
  Weight: 62 kg

DRUGS (1)
  1. XEPLION [Suspect]
     Indication: SCHIZOPHRENIA
     Route: 030
     Dates: start: 20130319

REACTIONS (6)
  - Delirium [Unknown]
  - Dissociation [Unknown]
  - Intentional self-injury [Recovered/Resolved with Sequelae]
  - Splenic injury [Unknown]
  - Hallucination [Unknown]
  - Shock [Unknown]
